FAERS Safety Report 5123058-3 (Version None)
Quarter: 2006Q4

REPORT INFORMATION
  Report Type: 
  Country: None (occurrence: None)
  Receive Date: 20061005
  Receipt Date: 20060922
  Transmission Date: 20070319
  Serious: Yes (Hospitalization, Other)
  Sender: FDA-Public Use
  Company Number: US200609002377

PATIENT
  Sex: Male
  Weight: 113.4 kg

DRUGS (3)
  1. ZYPREXA [Suspect]
     Dosage: 5 MG
     Dates: start: 20020101, end: 20040101
  2. SEROQUEL [Concomitant]
  3. HALDOL [Concomitant]

REACTIONS (7)
  - BLOOD CHOLESTEROL ABNORMAL [None]
  - BLOOD TRIGLYCERIDES INCREASED [None]
  - CARDIAC FAILURE CONGESTIVE [None]
  - DIABETES MELLITUS [None]
  - HEART TRANSPLANT [None]
  - HYPERTENSION [None]
  - WEIGHT INCREASED [None]
